FAERS Safety Report 25391937 (Version 4)
Quarter: 2025Q3

REPORT INFORMATION
  Report Type: Spontaneous
  Country: IQ (occurrence: IQ)
  Receive Date: 20250603
  Receipt Date: 20250805
  Transmission Date: 20251021
  Serious: Yes (Death, Other)
  Sender: SANOFI AVENTIS
  Company Number: IQ-SA-2025SA157196

PATIENT
  Age: 75 Year
  Sex: Female

DRUGS (8)
  1. SARCLISA [Suspect]
     Active Substance: ISATUXIMAB-IRFC
     Indication: Plasma cell myeloma
     Route: 042
  2. DEXAMETHASONE [Concomitant]
     Active Substance: DEXAMETHASONE
     Indication: Plasma cell myeloma
  3. DEXAMETHASONE [Concomitant]
     Active Substance: DEXAMETHASONE
     Indication: Premedication
  4. KYPROLIS [Concomitant]
     Active Substance: CARFILZOMIB
     Indication: Plasma cell myeloma
     Route: 042
  5. TOLODODEKIN ALFA [Concomitant]
     Active Substance: TOLODODEKIN ALFA
  6. ACETAMINOPHEN [Concomitant]
     Active Substance: ACETAMINOPHEN
     Indication: Premedication
  7. DECADRON [Concomitant]
     Active Substance: DEXAMETHASONE
     Indication: Premedication
  8. CHLORPHENIRAMINE MALEATE [Concomitant]
     Active Substance: CHLORPHENIRAMINE MALEATE
     Indication: Premedication

REACTIONS (6)
  - Anaphylactic shock [Fatal]
  - Loss of consciousness [Fatal]
  - Pulse absent [Fatal]
  - Hypotension [Fatal]
  - Dyspnoea [Fatal]
  - Wheezing [Fatal]

NARRATIVE: CASE EVENT DATE: 20250528
